FAERS Safety Report 9624993 (Version 1)
Quarter: 2013Q4

REPORT INFORMATION
  Report Type: Spontaneous
  Country: IT (occurrence: IT)
  Receive Date: 20131016
  Receipt Date: 20131016
  Transmission Date: 20140711
  Serious: Yes (Other)
  Sender: FDA-Public Use
  Company Number: IT-JNJFOC-20131000999

PATIENT
  Sex: 0

DRUGS (6)
  1. ACETAMINOPHEN [Suspect]
     Route: 048
  2. ACETAMINOPHEN [Suspect]
     Indication: PAIN
     Route: 048
  3. NAPROXEN [Interacting]
     Indication: PAIN
     Route: 048
  4. RAMIPRIL [Interacting]
     Indication: HYPERTENSION
     Route: 065
  5. VALSARTAN [Interacting]
     Indication: HYPERTENSION
     Route: 065
  6. ALISKIREN [Interacting]
     Indication: HYPERTENSION
     Route: 065

REACTIONS (3)
  - Blood pressure increased [Unknown]
  - Drug interaction [Unknown]
  - Heart rate increased [Unknown]
